FAERS Safety Report 23623992 (Version 2)
Quarter: 2024Q1

REPORT INFORMATION
  Report Type: Spontaneous
  Country: US (occurrence: US)
  Receive Date: 20240312
  Receipt Date: 20240315
  Transmission Date: 20240410
  Serious: No
  Sender: FDA-Public Use
  Company Number: US-SANDOZ-SDZ2024US026378

PATIENT
  Sex: Female

DRUGS (1)
  1. RECLAST [Suspect]
     Active Substance: ZOLEDRONIC ACID
     Indication: Product used for unknown indication
     Route: 065
     Dates: start: 20240305, end: 20240305

REACTIONS (5)
  - Influenza like illness [Unknown]
  - Ageusia [Unknown]
  - Fatigue [Unknown]
  - Ageusia [Unknown]
  - Oropharyngeal pain [Unknown]
